FAERS Safety Report 17808274 (Version 1)
Quarter: 2020Q2

REPORT INFORMATION
  Report Type: Spontaneous
  Country: FR (occurrence: FR)
  Receive Date: 20200520
  Receipt Date: 20200520
  Transmission Date: 20200714
  Serious: Yes (Other)
  Sender: FDA-Public Use
  Company Number: FR-ROCHE-2602289

PATIENT
  Age: 25 Year
  Sex: Female

DRUGS (2)
  1. VALIUM [Suspect]
     Active Substance: DIAZEPAM
     Indication: DRUG USE DISORDER
     Route: 065
     Dates: start: 2019
  2. LEXOMIL [Suspect]
     Active Substance: BROMAZEPAM
     Indication: DRUG USE DISORDER
     Route: 065
     Dates: start: 2014

REACTIONS (1)
  - Drug use disorder [Not Recovered/Not Resolved]

NARRATIVE: CASE EVENT DATE: 2014
